FAERS Safety Report 12529795 (Version 1)
Quarter: 2016Q3

REPORT INFORMATION
  Report Type: Spontaneous
  Country: US (occurrence: US)
  Receive Date: 20160706
  Receipt Date: 20160706
  Transmission Date: 20161109
  Serious: Yes (Other)
  Sender: FDA-Public Use
  Company Number: US-CIPLA LTD.-2016US07978

PATIENT

DRUGS (2)
  1. VINBLASTINE [Suspect]
     Active Substance: VINBLASTINE
     Indication: ASTROCYTOMA
     Dosage: 4 MG/M2, WEEKLY X 3, SCHEDULE B: REPEATED EVERY 4 WEEKS
     Route: 042
  2. CARBOPLATIN. [Suspect]
     Active Substance: CARBOPLATIN
     Indication: ASTROCYTOMA
     Dosage: 400 MG/M2, ON DAY 1, SCHEDULE B: REPEATED EVERY 4 WEEKS
     Route: 042

REACTIONS (1)
  - Disease progression [Unknown]
